FAERS Safety Report 8600783-0 (Version None)
Quarter: 2012Q3

REPORT INFORMATION
  Report Type: 
  Country: None (occurrence: None)
  Receive Date: 20120806
  Receipt Date: 20120723
  Transmission Date: 20120928
  Serious: Yes (Other)
  Sender: FDA-Public Use
  Company Number: 2012000068

PATIENT
  Age: 64 Year
  Sex: Male

DRUGS (16)
  1. NOVOLOG [Suspect]
     Indication: TYPE 2 DIABETES MELLITUS
     Dosage: 64 IU
  2. EZETIMIBE [Concomitant]
  3. ACEON [Suspect]
     Indication: PRODUCT USED FOR UNKNOWN INDICATION
  4. LEVEMIR [Suspect]
     Indication: TYPE 2 DIABETES MELLITUS
     Dosage: 30 IU
  5. METAMUCIL-2 [Concomitant]
  6. ASPIRIN [Concomitant]
  7. SPIRIVA [Concomitant]
  8. SAXAGLIPTIN (SAXAGLIPTIN) [Suspect]
     Indication: TYPE 2 DIABETES MELLITUS
     Dosage: DF, UNK
  9. AMYLASE (AMYLASE) [Concomitant]
  10. FLIXONASE (FLUCTICASONE PROPIONATE) [Concomitant]
  11. SERETIDE (FLUTICASONE PROPIONATE, SALMETEROL XINAFOATE) [Concomitant]
  12. TAMSULOSIN HCL [Concomitant]
  13. VENTOLIN [Concomitant]
  14. LIPASE (LIPASE) [Concomitant]
  15. PLACEBO [Suspect]
     Dates: start: 20110127
  16. NEXIUM [Concomitant]

REACTIONS (4)
  - CONSTIPATION [None]
  - ADENOCARCINOMA PANCREAS [None]
  - PANCREATITIS CHRONIC [None]
  - PANCREATIC CALCIFICATION [None]
